FAERS Safety Report 19230183 (Version 6)
Quarter: 2021Q3

REPORT INFORMATION
  Report Type: Report from Study
  Country: US (occurrence: US)
  Receive Date: 20210507
  Receipt Date: 20210709
  Transmission Date: 20211014
  Serious: Yes (Other)
  Sender: FDA-Public Use
  Company Number: NVSC2021US096887

PATIENT
  Age: 79 Year
  Sex: Male

DRUGS (2)
  1. HYDRALAZINE [Suspect]
     Active Substance: HYDRALAZINE HYDROCHLORIDE
     Indication: PRODUCT USED FOR UNKNOWN INDICATION
     Dosage: UNK
     Route: 065
     Dates: start: 2017
  2. ENTRESTO [Suspect]
     Active Substance: SACUBITRIL\VALSARTAN
     Indication: PRODUCT USED FOR UNKNOWN INDICATION
     Dosage: 1 DF, BID
     Route: 065
     Dates: start: 2016

REACTIONS (12)
  - Loss of consciousness [Unknown]
  - Arterial disorder [Recovered/Resolved with Sequelae]
  - Eye disorder [Recovered/Resolved with Sequelae]
  - Malaise [Unknown]
  - Cerebrovascular accident [Recovered/Resolved with Sequelae]
  - Weight increased [Unknown]
  - Fatigue [Not Recovered/Not Resolved]
  - Drug ineffective [Unknown]
  - Hypotension [Unknown]
  - Myocardial infarction [Recovered/Resolved with Sequelae]
  - Wrong technique in product usage process [Unknown]
  - Prescribed underdose [Unknown]

NARRATIVE: CASE EVENT DATE: 2017
